FAERS Safety Report 19090209 (Version 2)
Quarter: 2021Q2

REPORT INFORMATION
  Report Type: Spontaneous
  Country: FR (occurrence: FR)
  Receive Date: 20210404
  Receipt Date: 20210507
  Transmission Date: 20210717
  Serious: Yes (Death, Other)
  Sender: FDA-Public Use
  Company Number: FR-CELLTRION INC.-2021FR004317

PATIENT

DRUGS (5)
  1. TRASTUZUMAB (UNKNOWN) [Suspect]
     Active Substance: TRASTUZUMAB
     Indication: BREAST CANCER
     Dosage: 8 MG/KG (LOADING DOSE)
  2. PERTUZUMAB. [Suspect]
     Active Substance: PERTUZUMAB
     Indication: BREAST CANCER
     Dosage: 840 MG (LOADING DOSE)
  3. PERTUZUMAB. [Suspect]
     Active Substance: PERTUZUMAB
     Dosage: 420MG (MAINTENANCE TREATMENT)
  4. TRASTUZUMAB (UNKNOWN) [Suspect]
     Active Substance: TRASTUZUMAB
     Dosage: 6MG/KG EVERY 3 WEEKS (MAINTENANCE TREATMENT)
  5. DOCETAXEL. [Suspect]
     Active Substance: DOCETAXEL
     Indication: BREAST CANCER

REACTIONS (11)
  - Ejection fraction decreased [Recovered/Resolved]
  - Asthenia [Unknown]
  - Therapeutic response decreased [Unknown]
  - Breast cancer [Fatal]
  - Radiation skin injury [Unknown]
  - Breast cancer recurrent [Unknown]
  - Fatigue [Unknown]
  - Disease progression [Fatal]
  - Cardiotoxicity [Unknown]
  - Oesophagitis [Recovered/Resolved]
  - Telangiectasia [Unknown]
